FAERS Safety Report 11254030 (Version 2)
Quarter: 2015Q3

REPORT INFORMATION
  Report Type: Spontaneous
  Country: GB (occurrence: GB)
  Receive Date: 20150709
  Receipt Date: 20150807
  Transmission Date: 20151125
  Serious: Yes (Hospitalization)
  Sender: FDA-Public Use
  Company Number: GB-TEVA-575771ACC

PATIENT
  Age: 76 Year

DRUGS (15)
  1. LIPITOR [Concomitant]
     Active Substance: ATORVASTATIN CALCIUM
     Dosage: 10 MILLIGRAM DAILY; 10 MG DAILY, NIGHTLY
     Route: 048
  2. LANSOPRAZOLE. [Concomitant]
     Active Substance: LANSOPRAZOLE
     Dosage: 30 MILLIGRAM DAILY; 30 MG DAILY; GASTRORESISTANT CAPSULE
     Route: 048
  3. SALBUTAMOL [Concomitant]
     Active Substance: ALBUTEROL
     Route: 055
  4. AMLODIPINE [Concomitant]
     Active Substance: AMLODIPINE BESYLATE
     Dosage: 5 MILLIGRAM DAILY;
     Route: 048
  5. FUROSEMIDE. [Concomitant]
     Active Substance: FUROSEMIDE
     Dosage: 40 MILLIGRAM DAILY; 40 MG DAILY; ONCE IN THE MORNING, ON HOLD
     Route: 048
     Dates: end: 20141011
  6. FOLIC ACID. [Concomitant]
     Active Substance: FOLIC ACID
     Dosage: 5 MILLIGRAM DAILY;
     Route: 048
  7. ISOSORBIDE MONONITRATE. [Concomitant]
     Active Substance: ISOSORBIDE MONONITRATE
     Dosage: 60 MILLIGRAM DAILY; 60 MG DAILY, MODIFIED RELEASE TABLET
     Route: 048
  8. HYDRALAZINE [Concomitant]
     Active Substance: HYDRALAZINE HYDROCHLORIDE
     Dosage: 50 MILLIGRAM DAILY;
  9. QUININE SULPHATE [Concomitant]
     Active Substance: QUININE SULFATE
     Dosage: 300 MILLIGRAM DAILY; 300 MG DAILY, NIGHTLY
     Route: 048
  10. SENNA [Concomitant]
     Active Substance: SENNA LEAF\SENNOSIDES\SENNOSIDES A AND B
     Dosage: 15 MILLIGRAM DAILY; 15 MG DAILY; NIGHTLY
     Route: 048
  11. ALENDRONIC ACID [Concomitant]
     Active Substance: ALENDRONIC ACID
     Route: 048
  12. TRIMETHOPRIM. [Suspect]
     Active Substance: TRIMETHOPRIM
     Dosage: 400 MILLIGRAM DAILY;
     Route: 048
     Dates: start: 20141002, end: 20141007
  13. GLYCERYL TRINITRATE [Concomitant]
     Active Substance: NITROGLYCERIN
     Route: 060
  14. PREGABALIN. [Concomitant]
     Active Substance: PREGABALIN
     Dosage: 150 MILLIGRAM DAILY;
     Route: 048
  15. ADCAL-D3 [Concomitant]
     Active Substance: CALCIUM CARBONATE\CHOLECALCIFEROL
     Dosage: 2 DOSAGE FORMS DAILY; 750MG/200UNIT CAPLETS
     Route: 048

REACTIONS (4)
  - Balance disorder [Unknown]
  - Orthostatic hypotension [Unknown]
  - Acute kidney injury [Unknown]
  - Fall [Unknown]
